FAERS Safety Report 5037164-5 (Version None)
Quarter: 2006Q2

REPORT INFORMATION
  Report Type: 
  Country: None (occurrence: None)
  Receive Date: 20060623
  Receipt Date: 20060607
  Transmission Date: 20061013
  Serious: Yes (Other)
  Sender: FDA-Public Use
  Company Number: JP200606002438

PATIENT
  Age: 78 Year
  Sex: Female

DRUGS (4)
  1. EVISTA [Suspect]
     Indication: OSTEOPOROSIS
     Dosage: 60 MG, DAILY (1/D), ORAL
     Route: 048
     Dates: start: 20040616, end: 20060522
  2. ALFAROL (ALFACALCIDOL) [Concomitant]
  3. ASPARA-CA (ASPARTATE CALCIUM) [Concomitant]
  4. ELCITONIN (ELCATONIN) [Concomitant]

REACTIONS (2)
  - EMBOLISM VENOUS [None]
  - RETINAL VEIN OCCLUSION [None]
